FAERS Safety Report 19817942 (Version 2)
Quarter: 2021Q3

REPORT INFORMATION
  Report Type: Spontaneous
  Country: JP (occurrence: JP)
  Receive Date: 20210910
  Receipt Date: 20210928
  Transmission Date: 20211014
  Serious: Yes (Other)
  Sender: FDA-Public Use
  Company Number: JP-BAXTER-2021BAX028224

PATIENT
  Age: 74 Year
  Sex: Male

DRUGS (7)
  1. ADRIACIN [Concomitant]
     Active Substance: DOXORUBICIN HYDROCHLORIDE
     Indication: PHAEOCHROMOCYTOMA
     Dosage: AT THE AGE OF 51
     Route: 065
  2. VINCRISTINE SULFATE. [Concomitant]
     Active Substance: VINCRISTINE SULFATE
     Dosage: UNTIL OF 65 YEARS OLD
     Route: 065
  3. VINCRISTINE SULFATE. [Concomitant]
     Active Substance: VINCRISTINE SULFATE
     Indication: PHAEOCHROMOCYTOMA
     Dosage: AT THE AGE OF 51
     Route: 065
  4. DACARBAZINE. [Concomitant]
     Active Substance: DACARBAZINE
     Indication: PHAEOCHROMOCYTOMA
     Dosage: AT THE AGE OF 51
     Route: 065
  5. ENDOXAN 1G [Suspect]
     Active Substance: CYCLOPHOSPHAMIDE
     Indication: PHAEOCHROMOCYTOMA
     Dosage: AT THE AGE OF 51
     Route: 065
  6. ENDOXAN 1G [Suspect]
     Active Substance: CYCLOPHOSPHAMIDE
     Dosage: UNTIL 65 YEARS OLD.
     Route: 065
  7. DACARBAZINE. [Concomitant]
     Active Substance: DACARBAZINE
     Dosage: UNTIL 65 YEARS OLD
     Route: 065

REACTIONS (2)
  - Colorectal cancer [Recovering/Resolving]
  - Gastric cancer [Recovering/Resolving]
